FAERS Safety Report 5203507-2 (Version None)
Quarter: 2007Q1

REPORT INFORMATION
  Report Type: 
  Country: None (occurrence: None)
  Receive Date: 20070105
  Receipt Date: 20061220
  Transmission Date: 20070707
  Serious: Yes (Disabling)
  Sender: FDA-Public Use
  Company Number: S07-FRA-00020-01

PATIENT
  Age: 84 Year
  Sex: Male

DRUGS (7)
  1. MEMANTINE HCL [Suspect]
     Indication: DEMENTIA ALZHEIMER'S TYPE
     Dosage: 10 MG BID PO
     Route: 048
     Dates: start: 20050101, end: 20060922
  2. ARICEPT [Concomitant]
  3. CITALOPRAM HYDROBROMIDE [Concomitant]
  4. KARDEGIC (ACETYLSALICYLATE LYSINE) [Concomitant]
  5. SECTRAL [Concomitant]
  6. PRAVASTATIN [Concomitant]
  7. RABEPRAZOLE SODIUM [Concomitant]

REACTIONS (7)
  - ABNORMAL BEHAVIOUR [None]
  - APATHY [None]
  - CONDITION AGGRAVATED [None]
  - DYSPRAXIA [None]
  - GAIT DISTURBANCE [None]
  - MOOD SWINGS [None]
  - SPEECH DISORDER [None]
